FAERS Safety Report 9525625 (Version 2)
Quarter: 2013Q3

REPORT INFORMATION
  Report Type: Spontaneous
  Country: BR (occurrence: BR)
  Receive Date: 20130915
  Receipt Date: 20130915
  Transmission Date: 20140515
  Serious: Yes (Disabling)
  Sender: FDA-Public Use
  Company Number: BR-BIOMARINAP-BR-2013-101193

PATIENT
  Sex: Female
  Weight: 25 kg

DRUGS (1)
  1. NAGLAZYME [Suspect]
     Indication: MUCOPOLYSACCHARIDOSIS VI
     Dosage: 20 MG, QW
     Route: 041
     Dates: start: 20080903

REACTIONS (3)
  - Spinal cord compression [Unknown]
  - Developmental hip dysplasia [Unknown]
  - Gait disturbance [Unknown]
